FAERS Safety Report 4396295-3 (Version None)
Quarter: 2004Q3

REPORT INFORMATION
  Report Type: 
  Country: None (occurrence: None)
  Receive Date: 20040713
  Receipt Date: 20040706
  Transmission Date: 20050211
  Serious: Yes (Death)
  Sender: FDA-Public Use
  Company Number: JPKYO-S-20040019

PATIENT
  Age: 63 Year
  Sex: Male

DRUGS (5)
  1. NAVELBINE [Suspect]
     Indication: NON-SMALL CELL LUNG CANCER
     Dosage: 20MGM2 SEE DOSAGE TEXT
     Route: 042
     Dates: start: 20010213, end: 20010403
  2. GEMZAR [Suspect]
     Dates: start: 20010213
  3. SEROTONE [Concomitant]
     Dates: start: 20010213, end: 20010404
  4. MAXIPIME [Concomitant]
     Dates: start: 20010311, end: 20010314
  5. CARBENIN [Concomitant]
     Dates: start: 20010315, end: 20010328

REACTIONS (10)
  - ALANINE AMINOTRANSFERASE INCREASED [None]
  - ASPARTATE AMINOTRANSFERASE INCREASED [None]
  - BLOOD LACTATE DEHYDROGENASE INCREASED [None]
  - ERYTHROPENIA [None]
  - HAEMATOCRIT DECREASED [None]
  - HAEMOGLOBIN DECREASED [None]
  - INTERSTITIAL LUNG DISEASE [None]
  - LEUKOPENIA [None]
  - NEUTROPENIA [None]
  - NON-SMALL CELL LUNG CANCER [None]
